FAERS Safety Report 6625633-3 (Version None)
Quarter: 2010Q1

REPORT INFORMATION
  Report Type: 
  Country: None (occurrence: None)
  Receive Date: 20100310
  Receipt Date: 20100305
  Transmission Date: 20100710
  Serious: Yes (Death, Life-Threatening, Hospitalization)
  Sender: FDA-Public Use
  Company Number: DE-PFIZER INC-2010016160

PATIENT
  Age: 72 Year
  Sex: Male
  Weight: 97 kg

DRUGS (12)
  1. PREDNISONE [Suspect]
     Indication: PROSTATE CANCER
     Dosage: 5 MG, 2X/DAY
     Route: 048
     Dates: start: 20091216
  2. BLINDED *NO SUBJECT DRUG [Suspect]
     Indication: PROSTATE CANCER
     Dosage: 37.5 MG, 1X/DAY
     Route: 048
     Dates: start: 20091216
  3. BLINDED *PLACEBO [Suspect]
     Indication: PROSTATE CANCER
     Dosage: 37.5 MG, 1X/DAY
     Route: 048
     Dates: start: 20091216
  4. BLINDED SUNITINIB MALATE [Suspect]
     Indication: PROSTATE CANCER
     Dosage: 37.5 MG, 1X/DAY
     Route: 048
     Dates: start: 20091216
  5. VOLTAREN RESINAT ^GEIGY^ [Concomitant]
     Dosage: 75 MG, 3X/DAY
  6. PANTOZOL [Concomitant]
     Dosage: 20 MG, 1X/DAY
  7. ZOPICLONE [Concomitant]
     Dosage: 7.5 MG, 1X/DAY
  8. NOVALGIN [Concomitant]
     Dosage: 20-40 DROPS EVERY 6 HOURS
  9. CIPRAMIL [Concomitant]
     Dosage: 20 MG, 1X/DAY
     Dates: start: 20100118
  10. TOVIAZ [Concomitant]
     Dosage: 4 MG, 2X/DAY
     Dates: start: 20091207
  11. MICTONORM [Concomitant]
     Dosage: 1 DF, 1X/DAY
     Dates: start: 20091214
  12. INFECTOTRIMET [Concomitant]
     Dosage: 100 MG, 1X/DAY
     Dates: start: 20091214

REACTIONS (2)
  - DEATH [None]
  - GASTROINTESTINAL HAEMORRHAGE [None]
